FAERS Safety Report 6026667-2 (Version None)
Quarter: 2008Q4

REPORT INFORMATION
  Report Type: 
  Country: None (occurrence: None)
  Receive Date: 20081231
  Receipt Date: 20081218
  Transmission Date: 20090506
  Serious: Yes (Hospitalization)
  Sender: FDA-Public Use
  Company Number: 2008AL012558

PATIENT
  Age: 68 Year
  Sex: Male
  Weight: 99.7913 kg

DRUGS (2)
  1. DIGOXIN [Suspect]
     Indication: MYOCARDIAL INFARCTION
     Dosage: 0.25MG, DAILY, PO; LONG TIME
     Route: 048
  2. CARTIA XT [Concomitant]

REACTIONS (7)
  - ACTIVITIES OF DAILY LIVING IMPAIRED [None]
  - BEDRIDDEN [None]
  - DIZZINESS [None]
  - GAIT DISTURBANCE [None]
  - HEART RATE DECREASED [None]
  - HYPOTENSION [None]
  - MOBILITY DECREASED [None]
